FAERS Safety Report 18479468 (Version 1)
Quarter: 2020Q4

REPORT INFORMATION
  Report Type: Spontaneous
  Country: US (occurrence: US)
  Receive Date: 20201106
  Receipt Date: 20201106
  Transmission Date: 20210114
  Serious: Yes (Disabling, Other)
  Sender: FDA-Public Use
  Company Number: None

PATIENT
  Age: 50 Year
  Sex: Male
  Weight: 134.1 kg

DRUGS (3)
  1. OZEMPIC [Concomitant]
     Active Substance: SEMAGLUTIDE
  2. LASIX [Concomitant]
     Active Substance: FUROSEMIDE
  3. BACLOFEN. [Suspect]
     Active Substance: BACLOFEN
     Indication: MYOSITIS
     Dosage: ?          QUANTITY:1 TABLET(S);?
     Route: 048
     Dates: start: 20200901, end: 20201001

REACTIONS (8)
  - Product substitution issue [None]
  - Hypoaesthesia [None]
  - Myositis [None]
  - Flushing [None]
  - Pharyngeal swelling [None]
  - Muscle spasticity [None]
  - Throat tightness [None]
  - Paraesthesia [None]

NARRATIVE: CASE EVENT DATE: 20200901
